FAERS Safety Report 5863560-X (Version None)
Quarter: 2008Q3

REPORT INFORMATION
  Report Type: 
  Country: None (occurrence: None)
  Receive Date: 20080828
  Receipt Date: 20080819
  Transmission Date: 20090109
  Serious: Yes (Hospitalization, Other)
  Sender: FDA-Public Use
  Company Number: US-ELI_LILLY_AND_COMPANY-US200808003622

PATIENT
  Sex: Female

DRUGS (9)
  1. CYMBALTA [Suspect]
     Indication: SCHIZOPHRENIA
     Dosage: 60 MG, DAILY (1/D)
     Dates: start: 20080201
  2. ZYPREXA [Suspect]
     Dosage: 5 MG, EACH EVENING
  3. ATIVAN [Concomitant]
  4. MOM [Concomitant]
  5. PREMARIN [Concomitant]
  6. TENORMIN [Concomitant]
  7. PROTONIX [Concomitant]
  8. VITAMIN TAB [Concomitant]
  9. ZYRTEC [Concomitant]

REACTIONS (2)
  - HEPATIC ENZYME INCREASED [None]
  - HOSPITALISATION [None]
